FAERS Safety Report 8876113 (Version 1)
Quarter: 2012Q4

REPORT INFORMATION
  Report Type: Report from Study
  Country: US (occurrence: US)
  Receive Date: 20121023
  Receipt Date: 20121023
  Transmission Date: 20130627
  Serious: Yes (Other)
  Sender: FDA-Public Use
  Company Number: US-ABBOTT-12P-163-0995568-00

PATIENT
  Age: 78 None
  Sex: Female
  Weight: 80.81 kg

DRUGS (3)
  1. HUMIRA [Suspect]
     Indication: PSORIATIC ARTHROPATHY
     Dates: start: 2009
  2. XARELTO [Suspect]
     Indication: ATRIAL FIBRILLATION
  3. METHOTREXATE [Concomitant]
     Indication: PSORIATIC ARTHROPATHY

REACTIONS (4)
  - Vaginal polyp [Recovered/Resolved]
  - Vaginal haemorrhage [Recovered/Resolved]
  - Herpes zoster [Not Recovered/Not Resolved]
  - Skin ulcer [Not Recovered/Not Resolved]
